FAERS Safety Report 17675029 (Version 1)
Quarter: 2020Q2

REPORT INFORMATION
  Report Type: Report from Study
  Country: IT (occurrence: IT)
  Receive Date: 20200416
  Receipt Date: 20200416
  Transmission Date: 20200714
  Serious: Yes (Hospitalization)
  Sender: FDA-Public Use
  Company Number: IT-TEVA-2020-IT-1223700

PATIENT
  Age: 52 Year
  Sex: Male

DRUGS (3)
  1. OLANZAPINE. [Suspect]
     Active Substance: OLANZAPINE
     Indication: PERSONALITY DISORDER
     Dosage: 10 DOSAGE FORMS
     Route: 048
     Dates: start: 20200219, end: 20200219
  2. MOMENDOL 220 MG COMPRESSE RIVESTITE CON FILM [Concomitant]
     Active Substance: NAPROXEN SODIUM
  3. TIENOR 5 MG COMPRESSE [Concomitant]
     Dosage: 1 DOSAGE FORM

REACTIONS (2)
  - Respiratory failure [Unknown]
  - Drug abuse [Unknown]

NARRATIVE: CASE EVENT DATE: 20200219
